FAERS Safety Report 6213553-8 (Version None)
Quarter: 2009Q2

REPORT INFORMATION
  Report Type: 
  Country: None (occurrence: None)
  Receive Date: 20090603
  Receipt Date: 20090527
  Transmission Date: 20091009
  Serious: Yes (Other)
  Sender: FDA-Public Use
  Company Number: JP-JNJFOC-20090600359

PATIENT

DRUGS (2)
  1. RISPERDAL [Suspect]
     Indication: DRUG USE FOR UNKNOWN INDICATION
     Dosage: IN EVENING
     Route: 048
  2. RISPERDAL [Suspect]
     Dosage: AT BEDTIME AS REQUIRED
     Route: 048

REACTIONS (2)
  - BLUNTED AFFECT [None]
  - EXTREMITY CONTRACTURE [None]
